FAERS Safety Report 9372903 (Version 6)
Quarter: 2014Q2

REPORT INFORMATION
  Report Type: Spontaneous
  Country: JP (occurrence: JP)
  Receive Date: 20130627
  Receipt Date: 20140612
  Transmission Date: 20141212
  Serious: Yes (Death, Hospitalization, Disabling)
  Sender: FDA-Public Use
  Company Number: JP-BAYER-2013-076486

PATIENT
  Age: 20 Year
  Sex: Female
  Weight: 42 kg

DRUGS (4)
  1. YAZ [Suspect]
     Indication: DYSMENORRHOEA
     Dosage: DAILY DOSE 1 DF
     Route: 048
     Dates: start: 20130522, end: 20130528
  2. YAZ [Suspect]
     Indication: ACNE
  3. YAZ [Suspect]
     Indication: MENSTRUATION IRREGULAR
  4. RIZE [Concomitant]
     Dosage: UNK
     Route: 048

REACTIONS (17)
  - Intracranial venous sinus thrombosis [Fatal]
  - Haemorrhagic cerebral infarction [Fatal]
  - Headache [Fatal]
  - Incontinence [Fatal]
  - Depressed level of consciousness [Fatal]
  - Convulsion [Fatal]
  - Hydrocephalus [Fatal]
  - Decreased appetite [Fatal]
  - Mobility decreased [Fatal]
  - Respiratory failure [Fatal]
  - Asthenia [Fatal]
  - Nausea [Fatal]
  - Palpitations [Fatal]
  - Gait disturbance [Fatal]
  - Vomiting [Fatal]
  - Tachycardia [Fatal]
  - Hyperthermia [Fatal]
